FAERS Safety Report 15729360 (Version 1)
Quarter: 2018Q4

REPORT INFORMATION
  Report Type: Spontaneous
  Country: US (occurrence: US)
  Receive Date: 20181217
  Receipt Date: 20181217
  Transmission Date: 20190205
  Serious: No
  Sender: FDA-Public Use
  Company Number: US-009507513-1812USA005837

PATIENT
  Sex: Female

DRUGS (1)
  1. BELSOMRA [Suspect]
     Active Substance: SUVOREXANT
     Dosage: 1 PILL (5 MG) AS NEEDED
     Route: 048
     Dates: start: 20181206

REACTIONS (3)
  - Drug ineffective [Unknown]
  - Euphoric mood [Unknown]
  - Wrong schedule [Unknown]

NARRATIVE: CASE EVENT DATE: 201812
